FAERS Safety Report 8004455-5 (Version None)
Quarter: 2011Q4

REPORT INFORMATION
  Report Type: 
  Country: None (occurrence: None)
  Receive Date: 20111221
  Receipt Date: 20111221
  Transmission Date: 20120403
  Serious: Yes (Disabling)
  Sender: FDA-Public Use
  Company Number: None

PATIENT
  Age: 62 Year
  Sex: Female
  Weight: 74.3899 kg

DRUGS (2)
  1. RECLAST [Suspect]
     Indication: OSTEOPOROSIS
     Dosage: 1 A YR
     Dates: start: 20110701
  2. RECLAST [Suspect]
     Indication: OSTEOPOROSIS
     Dosage: 1 A YR
     Dates: start: 20100701

REACTIONS (2)
  - OSTEONECROSIS OF JAW [None]
  - OROPHARYNGEAL PAIN [None]
